FAERS Safety Report 9188405 (Version 1)
Quarter: 2012Q4

REPORT INFORMATION
  Report Type: 
  Country: US (occurrence: US)
  Receive Date: 20121205
  Receipt Date: 20121205
  Transmission Date: 20130627
  Serious: Yes (Death)
  Sender: FDA-Public Use
  Company Number: PHEH2012US023674

PATIENT
  Sex: Female

DRUGS (1)
  1. RECLAST [Suspect]
     Route: 042
     Dates: start: 20110923

REACTIONS (1)
  - Pulmonary fibrosis [Fatal]
